FAERS Safety Report 19803245 (Version 1)
Quarter: 2021Q3

REPORT INFORMATION
  Report Type: Report from Study
  Country: CA (occurrence: CA)
  Receive Date: 20210908
  Receipt Date: 20210908
  Transmission Date: 20211014
  Serious: Yes (Other)
  Sender: FDA-Public Use
  Company Number: CA-HLS-202108227

PATIENT
  Sex: Female

DRUGS (2)
  1. CLOZARIL [Suspect]
     Active Substance: CLOZAPINE
     Indication: PRODUCT USED FOR UNKNOWN INDICATION
     Route: 048
     Dates: start: 20210823, end: 20210828
  2. CLOZARIL [Suspect]
     Active Substance: CLOZAPINE
     Indication: PRODUCT USED FOR UNKNOWN INDICATION
     Dosage: 3 DOSES OF CLOZAPINE 25 MG AT BEDTIME.
     Route: 048
     Dates: start: 20210719, end: 20210721

REACTIONS (4)
  - Hallucination, auditory [Unknown]
  - Eosinophilia [Recovered/Resolved]
  - Dizziness [Unknown]
  - Tubulointerstitial nephritis [Unknown]
